FAERS Safety Report 9515016 (Version 1)
Quarter: 2013Q1

REPORT INFORMATION
  Report Type: Spontaneous
  Country: US (occurrence: None)
  Receive Date: 20130305
  Receipt Date: 20130305
  Transmission Date: 20140127
  Serious: Yes (Other)
  Sender: FDA-Public Use
  Company Number: 163-21880-12043234

PATIENT
  Age: 72 Year
  Sex: Female

DRUGS (7)
  1. REVLIMID (LENALIDOMIDE) (CAPSULES) [Suspect]
     Indication: PLASMA CELL MYELOMA
     Route: 048
     Dates: start: 20120331
  2. LISINOPRIL (LISINOPRIL) [Concomitant]
  3. ASA (ACETYLSALICYLIC ACID) [Concomitant]
  4. ATIVAN (LORAZEPAM) [Concomitant]
  5. LASIX (FURSOMIDE) [Concomitant]
  6. POTASSIUM (POTASSIUM) [Concomitant]
  7. ALLOPURINOL [Concomitant]

REACTIONS (3)
  - Hallucination [None]
  - Confusional state [None]
  - Pyrexia [None]
